FAERS Safety Report 9464626 (Version 1)
Quarter: 2013Q3

REPORT INFORMATION
  Report Type: Spontaneous
  Country: US (occurrence: US)
  Receive Date: 20130819
  Receipt Date: 20130819
  Transmission Date: 20140515
  Serious: Yes (Other)
  Sender: FDA-Public Use
  Company Number: US-PFIZER INC-2013239039

PATIENT
  Sex: Female

DRUGS (1)
  1. LYRICA [Suspect]
     Indication: DIABETIC NEUROPATHY
     Dosage: 75 MG, 2X/DAY
     Dates: start: 20130808

REACTIONS (9)
  - Dyspnoea [Unknown]
  - Rash macular [Unknown]
  - Vision blurred [Unknown]
  - Dysuria [Unknown]
  - Burning sensation [Unknown]
  - Gastric disorder [Unknown]
  - Eye disorder [Unknown]
  - Abdominal pain upper [Unknown]
  - Abdominal distension [Unknown]
